FAERS Safety Report 8161918-X (Version None)
Quarter: 2012Q1

REPORT INFORMATION
  Report Type: 
  Country: None (occurrence: None)
  Receive Date: 20120224
  Receipt Date: 20120214
  Transmission Date: 20120608
  Serious: Yes (Other)
  Sender: FDA-Public Use
  Company Number: US-MYLANLABS-2012S1003395

PATIENT
  Age: 31 Year
  Sex: Female

DRUGS (2)
  1. BUPROPION HYDROCHLORIDE [Suspect]
     Route: 048
     Dates: start: 20120211, end: 20120211
  2. BUPROPION HYDROCHLORIDE [Suspect]
     Indication: ATTENTION DEFICIT/HYPERACTIVITY DISORDER
     Route: 048
     Dates: start: 20120208, end: 20120210

REACTIONS (10)
  - CHEST DISCOMFORT [None]
  - HYPOAESTHESIA [None]
  - PARAESTHESIA [None]
  - HALLUCINATION [None]
  - DYSPHAGIA [None]
  - BLOOD PRESSURE INCREASED [None]
  - ANXIETY [None]
  - NAUSEA [None]
  - THOUGHT WITHDRAWAL [None]
  - HEART RATE INCREASED [None]
